FAERS Safety Report 4801177-6 (Version None)
Quarter: 2005Q4

REPORT INFORMATION
  Report Type: 
  Country: None (occurrence: None)
  Receive Date: 20051011
  Receipt Date: 20050929
  Transmission Date: 20060501
  Serious: Yes (Death, Life-Threatening, Other)
  Sender: FDA-Public Use
  Company Number: 200513377GDS

PATIENT
  Age: 67 Year
  Sex: Female

DRUGS (6)
  1. TRASYLOL [Suspect]
     Dosage: 200 KIU, TOTAL DAILY, INTRAVEN, CONTINUING
     Route: 042
  2. GLUCAGON [Concomitant]
  3. TETRACYCLINE HCL [Concomitant]
  4. AMPICILLIN [Concomitant]
  5. COLISTIN [Concomitant]
  6. METRONIDAZOLE [Concomitant]

REACTIONS (7)
  - ANAPHYLACTIC REACTION [None]
  - BRAIN DAMAGE [None]
  - CARDIO-RESPIRATORY ARREST [None]
  - HAEMATOTOXICITY [None]
  - HYPERSENSITIVITY [None]
  - PANCREATIC PSEUDOCYST [None]
  - PANCREATITIS RELAPSING [None]
